FAERS Safety Report 6274546-8 (Version None)
Quarter: 2009Q3

REPORT INFORMATION
  Report Type: 
  Country: None (occurrence: None)
  Receive Date: 20090720
  Receipt Date: 20090714
  Transmission Date: 20100115
  Serious: Yes (Other)
  Sender: FDA-Public Use
  Company Number: JP-AVENTIS-200911178JP

PATIENT
  Age: 60 Year
  Sex: Female
  Weight: 58 kg

DRUGS (7)
  1. ENOXAPARIN SODIUM [Suspect]
     Indication: HIP ARTHROPLASTY
     Route: 058
     Dates: start: 20090401, end: 20090406
  2. ENOXAPARIN SODIUM [Suspect]
     Route: 058
     Dates: start: 20090401, end: 20090406
  3. PANSPORIN [Concomitant]
     Indication: INFECTION PROPHYLAXIS
     Route: 042
     Dates: start: 20090331, end: 20090404
  4. KEFRAL [Concomitant]
     Indication: INFECTION PROPHYLAXIS
     Route: 048
     Dates: start: 20090405
  5. IRZAIM [Concomitant]
     Indication: PAIN
     Route: 048
     Dates: start: 20090401, end: 20090422
  6. MUCOSTA [Concomitant]
     Dosage: DOSE: 100 MG
     Route: 048
     Dates: start: 20090401, end: 20090422
  7. LOXONIN                            /00890701/ [Concomitant]
     Indication: PAIN
     Dosage: DOSE: 60 MG
     Route: 048
     Dates: start: 20090401, end: 20090422

REACTIONS (2)
  - HEPATIC FUNCTION ABNORMAL [None]
  - LIVER INJURY [None]
